FAERS Safety Report 20668068 (Version 1)
Quarter: 2022Q2

REPORT INFORMATION
  Report Type: Spontaneous
  Country: US (occurrence: US)
  Receive Date: 20220404
  Receipt Date: 20220404
  Transmission Date: 20220721
  Serious: No
  Sender: FDA-Public Use
  Company Number: US-BAYER-2022A039664

PATIENT
  Age: 35 Year
  Sex: Female

DRUGS (3)
  1. CLARITIN [Suspect]
     Active Substance: LORATADINE
     Indication: Rash pruritic
     Dosage: UNK
     Dates: start: 202202
  2. DIPHENHYDRAMINE HYDROCHLORIDE [Concomitant]
     Active Substance: DIPHENHYDRAMINE HYDROCHLORIDE
     Indication: Rash pruritic
     Dosage: UNK
     Dates: start: 202202
  3. ASPIRIN [Concomitant]
     Active Substance: ASPIRIN
     Indication: Rash pruritic
     Dosage: UNK
     Dates: start: 202202

REACTIONS (1)
  - Drug ineffective for unapproved indication [Unknown]

NARRATIVE: CASE EVENT DATE: 20220201
